FAERS Safety Report 22326815 (Version 1)
Quarter: 2023Q2

REPORT INFORMATION
  Report Type: Spontaneous
  Country: US (occurrence: US)
  Receive Date: 20230516
  Receipt Date: 20230516
  Transmission Date: 20230722
  Serious: No
  Sender: FDA-Public Use
  Company Number: US-RADIUS HEALTH INC.-2022US004806

PATIENT
  Age: 78 Year
  Sex: Female

DRUGS (1)
  1. TYMLOS [Suspect]
     Active Substance: ABALOPARATIDE
     Indication: Product used for unknown indication
     Dosage: 80 MICROGRAM, QD
     Route: 058

REACTIONS (10)
  - Chest pain [Recovering/Resolving]
  - Micturition urgency [Recovering/Resolving]
  - Pollakiuria [Recovering/Resolving]
  - Chills [Unknown]
  - Tremor [Unknown]
  - Palpitations [Recovering/Resolving]
  - Headache [Unknown]
  - Back pain [Recovering/Resolving]
  - Nausea [Recovering/Resolving]
  - Product dose omission issue [Unknown]

NARRATIVE: CASE EVENT DATE: 20221005
